FAERS Safety Report 6195215-9 (Version None)
Quarter: 2009Q2

REPORT INFORMATION
  Report Type: 
  Country: None (occurrence: None)
  Receive Date: 20090519
  Receipt Date: 20090508
  Transmission Date: 20091009
  Serious: Yes (Hospitalization, Other)
  Sender: FDA-Public Use
  Company Number: US-MERCK-0707USA02346

PATIENT
  Age: 61 Year
  Sex: Male

DRUGS (2)
  1. FOSAMAX PLUS D [Suspect]
     Indication: OSTEOPOROSIS
     Route: 048
     Dates: start: 20050801, end: 20060501
  2. FOSAMAX [Suspect]
     Indication: OSTEOPOROSIS
     Route: 048
     Dates: start: 20050817, end: 20060301

REACTIONS (6)
  - CARDIAC DISORDER [None]
  - CELLULITIS [None]
  - HYPERTENSION [None]
  - OSTEOMYELITIS [None]
  - OSTEONECROSIS [None]
  - SUBCUTANEOUS ABSCESS [None]
